FAERS Safety Report 5846513-7 (Version None)
Quarter: 2008Q3

REPORT INFORMATION
  Report Type: 
  Country: None (occurrence: None)
  Receive Date: 20080815
  Receipt Date: 20080805
  Transmission Date: 20090109
  Serious: Yes (Other)
  Sender: FDA-Public Use
  Company Number: US-JNJCH-2008020710

PATIENT
  Sex: Female

DRUGS (1)
  1. PURELL ORIGINAL [Suspect]
     Indication: ANTIBIOTIC PROPHYLAXIS
     Dosage: TEXT:SINGLE PUMP ONE TIME
     Route: 061

REACTIONS (3)
  - ACCIDENTAL EXPOSURE [None]
  - EYE IRRITATION [None]
  - EYE PAIN [None]
